FAERS Safety Report 25267400 (Version 2)
Quarter: 2025Q3

REPORT INFORMATION
  Report Type: Report from Study
  Country: US (occurrence: US)
  Receive Date: 20250505
  Receipt Date: 20250707
  Transmission Date: 20251020
  Serious: Yes (Other)
  Sender: NOVARTIS
  Company Number: US-002147023-NVSC2025US005485

PATIENT
  Sex: Male

DRUGS (1)
  1. KESIMPTA [Suspect]
     Active Substance: OFATUMUMAB
     Indication: Product used for unknown indication
     Route: 065

REACTIONS (6)
  - Optic neuritis [Unknown]
  - Visual impairment [Unknown]
  - Somnambulism [Unknown]
  - Nasal injury [Unknown]
  - White blood cell count decreased [Unknown]
  - Feeling abnormal [Unknown]
